FAERS Safety Report 5423572-7 (Version None)
Quarter: 2007Q3

REPORT INFORMATION
  Report Type: 
  Country: None (occurrence: None)
  Receive Date: 20070821
  Receipt Date: 20070821
  Transmission Date: 20080115
  Serious: Yes (Other)
  Sender: FDA-Public Use
  Company Number: None

PATIENT
  Sex: Male

DRUGS (2)
  1. ACCUPRIL [Suspect]
     Indication: HYPERTENSION
     Dosage: 40G PO QD
     Route: 048
     Dates: start: 20060301
  2. ACCUPRIL [Suspect]
     Indication: HYPERTENSION
     Dosage: 40G PO QD
     Route: 048
     Dates: start: 20060901

REACTIONS (1)
  - DRUG INTOLERANCE [None]
